FAERS Safety Report 18154939 (Version 1)
Quarter: 2020Q3

REPORT INFORMATION
  Report Type: Spontaneous
  Country: HK (occurrence: HK)
  Receive Date: 20200817
  Receipt Date: 20200817
  Transmission Date: 20201103
  Serious: Yes (Death, Other)
  Sender: FDA-Public Use
  Company Number: HK-LUPIN PHARMACEUTICALS INC.-2020-04624

PATIENT
  Age: 37 Year
  Sex: Female

DRUGS (11)
  1. TRETINOIN. [Suspect]
     Active Substance: TRETINOIN
     Indication: ACUTE PROMYELOCYTIC LEUKAEMIA
     Dosage: 45 MILLIGRAM/SQ. METER, QD?MAINTENANCE THERAPY (AAA REGIMEN); ADMINISTERED IN TWO DIVIDED DOSES FOR
     Route: 065
  2. DAUNORUBICIN [Suspect]
     Active Substance: DAUNORUBICIN
     Dosage: 50 MILLIGRAM/SQ. METER, QD (TWO MONTHLY CONSOLIDATIONS)
     Route: 065
  3. CYTARABINE. [Suspect]
     Active Substance: CYTARABINE
     Dosage: UNK HIGH?DOSE
     Route: 065
  4. IDARUBICIN [Suspect]
     Active Substance: IDARUBICIN
     Indication: ACUTE PROMYELOCYTIC LEUKAEMIA
     Dosage: 6 MILLIGRAM/SQ. METER, QD
     Route: 065
  5. DAUNORUBICIN [Suspect]
     Active Substance: DAUNORUBICIN
     Indication: ACUTE PROMYELOCYTIC LEUKAEMIA
     Dosage: 50 MILLIGRAM/SQ. METER, QD
     Route: 065
  6. CYTARABINE. [Suspect]
     Active Substance: CYTARABINE
     Indication: ACUTE PROMYELOCYTIC LEUKAEMIA
     Dosage: 100 MILLIGRAM/SQ. METER, QD (TWO MONTHLY CONSOLIDATIONS)
     Route: 065
  7. AZACITIDINE. [Suspect]
     Active Substance: AZACITIDINE
     Indication: ACUTE PROMYELOCYTIC LEUKAEMIA
     Dosage: UNK
     Route: 065
  8. ARSENIC TRIOXIDE. [Suspect]
     Active Substance: ARSENIC TRIOXIDE
     Indication: ACUTE PROMYELOCYTIC LEUKAEMIA
     Dosage: 10 MILLIGRAM, QD?MAINTENANCE THERAPY (AAA REGIMEN); ADMINISTERED FOR 2 WEEKS EVERY 2 MONTHS FOR 2 YE
     Route: 048
  9. ASCORBIC ACID. [Suspect]
     Active Substance: ASCORBIC ACID
     Indication: ACUTE PROMYELOCYTIC LEUKAEMIA
     Dosage: 1 GRAM, QD MAINTENANCE THERAPY (AAA REGIMEN); ADMINISTERED FOR 2 WEEKS EVERY 2 MONTHS FOR 2 YEARS
     Route: 065
  10. GEMTUZUMAB OZOGAMICIN [Suspect]
     Active Substance: GEMTUZUMAB OZOGAMICIN
     Indication: ACUTE PROMYELOCYTIC LEUKAEMIA
     Dosage: UNK
     Route: 065
  11. METHOTREXATE. [Suspect]
     Active Substance: METHOTREXATE
     Indication: ACUTE PROMYELOCYTIC LEUKAEMIA
     Dosage: UNK
     Route: 065

REACTIONS (1)
  - Drug ineffective [Fatal]
